FAERS Safety Report 7991390-1 (Version None)
Quarter: 2011Q4

REPORT INFORMATION
  Report Type: 
  Country: None (occurrence: None)
  Receive Date: 20111219
  Receipt Date: 20111216
  Transmission Date: 20120403
  Serious: Yes (Death)
  Sender: FDA-Public Use
  Company Number: VE-PFIZER INC-2011301917

PATIENT
  Age: 76 Year
  Sex: Female

DRUGS (1)
  1. LIPITOR [Suspect]
     Indication: CATHETERISATION CARDIAC
     Dosage: UNK, ONCE DAILY
     Route: 048
     Dates: start: 20111026, end: 20111031

REACTIONS (1)
  - MYOCARDIAL INFARCTION [None]
